FAERS Safety Report 21605200 (Version 1)
Quarter: 2022Q4

REPORT INFORMATION
  Report Type: Report from Study
  Country: US (occurrence: US)
  Receive Date: 20221116
  Receipt Date: 20221116
  Transmission Date: 20230112
  Serious: No
  Sender: FDA-Public Use
  Company Number: US-ABBVIE-4156915

PATIENT
  Sex: Male

DRUGS (1)
  1. HUMIRA [Suspect]
     Active Substance: ADALIMUMAB
     Indication: Product used for unknown indication
     Dosage: FORM STRENGTH-40MG
     Route: 058

REACTIONS (3)
  - Dementia Alzheimer^s type [Unknown]
  - Fear of injection [Unknown]
  - Product use issue [Not Recovered/Not Resolved]
